FAERS Safety Report 21856227 (Version 1)
Quarter: 2023Q1

REPORT INFORMATION
  Report Type: Spontaneous
  Country: CN (occurrence: CN)
  Receive Date: 20230112
  Receipt Date: 20230112
  Transmission Date: 20230418
  Serious: Yes (Hospitalization, Other)
  Sender: FDA-Public Use
  Company Number: CN-009507513-2301CHN002122

PATIENT
  Age: 49 Year
  Sex: Female

DRUGS (1)
  1. ZEPATIER [Suspect]
     Active Substance: ELBASVIR\GRAZOPREVIR
     Indication: Hepatitis C
     Dosage: 1 TABLET, QD
     Route: 048
     Dates: start: 20221208, end: 20221210

REACTIONS (2)
  - Henoch-Schonlein purpura [Recovering/Resolving]
  - Nephritis [Unknown]

NARRATIVE: CASE EVENT DATE: 20221210
